FAERS Safety Report 13404414 (Version 1)
Quarter: 2017Q2

REPORT INFORMATION
  Report Type: Spontaneous
  Country: US (occurrence: US)
  Receive Date: 20170405
  Receipt Date: 20170405
  Transmission Date: 20170830
  Serious: Yes (Other)
  Sender: FDA-Public Use
  Company Number: None

PATIENT
  Age: 49 Year
  Sex: Female
  Weight: 65.77 kg

DRUGS (2)
  1. INVANZ [Suspect]
     Active Substance: ERTAPENEM SODIUM
     Indication: URINARY TRACT INFECTION
     Dosage: 1000 MG Q24@200ML/HR INTRAVENOUS
     Route: 042
     Dates: start: 20170330, end: 20170331
  2. INVANZ [Suspect]
     Active Substance: ERTAPENEM SODIUM
     Indication: PATHOGEN RESISTANCE
     Dosage: 1000 MG Q24@200ML/HR INTRAVENOUS
     Route: 042
     Dates: start: 20170330, end: 20170331

REACTIONS (2)
  - Lip swelling [None]
  - Swelling face [None]

NARRATIVE: CASE EVENT DATE: 20170331
